FAERS Safety Report 24199538 (Version 1)
Quarter: 2024Q3

REPORT INFORMATION
  Report Type: Spontaneous
  Country: US (occurrence: US)
  Receive Date: 20240812
  Receipt Date: 20240812
  Transmission Date: 20241017
  Serious: Yes (Other)
  Sender: JOHNSON AND JOHNSON
  Company Number: US-JNJFOC-20240809727

PATIENT

DRUGS (1)
  1. BENADRYL [Suspect]
     Active Substance: DIPHENHYDRAMINE HYDROCHLORIDE
     Indication: Product used for unknown indication
     Dosage: (1/2 BENADRYL) ONE TIME
     Route: 065

REACTIONS (3)
  - Hallucination, visual [Recovering/Resolving]
  - Incorrect dose administered [Unknown]
  - Pain [Recovering/Resolving]
